FAERS Safety Report 5156214-9 (Version None)
Quarter: 2006Q4

REPORT INFORMATION
  Report Type: 
  Country: None (occurrence: None)
  Receive Date: 20061122
  Receipt Date: 20060524
  Transmission Date: 20070319
  Serious: Yes (Life-Threatening, Hospitalization, Other)
  Sender: FDA-Public Use
  Company Number: PHEH2006US06827

PATIENT
  Age: 61 Year
  Sex: Female
  Weight: 60.6 kg

DRUGS (4)
  1. CALTRATE [Concomitant]
     Indication: MINERAL SUPPLEMENTATION
     Dosage: 1 TAB BID
     Route: 048
  2. FEMARA [Suspect]
     Indication: BREAST CANCER
     Dosage: 2.5 MG, QD
     Route: 048
     Dates: start: 20041026
  3. HERCEPTIN [Suspect]
     Indication: BREAST CANCER
     Dosage: 6 MG/KG, Q3WK
     Route: 042
     Dates: start: 20050803, end: 20051122
  4. RADIATION THERAPY [Suspect]
     Indication: BREAST CANCER

REACTIONS (6)
  - ALOPECIA [None]
  - ARTHRALGIA [None]
  - LIVER ABSCESS [None]
  - MASTECTOMY [None]
  - RADIATION PNEUMONITIS [None]
  - RASH PRURITIC [None]
